FAERS Safety Report 6618811-0 (Version None)
Quarter: 2010Q1

REPORT INFORMATION
  Report Type: 
  Country: None (occurrence: None)
  Receive Date: 20100304
  Receipt Date: 20100304
  Transmission Date: 20100710
  Serious: No
  Sender: FDA-Public Use
  Company Number: None

PATIENT
  Age: 51 Year
  Sex: Female
  Weight: 81.6475 kg

DRUGS (5)
  1. FENTANYL [Suspect]
     Indication: FIBROMYALGIA
     Dosage: 20 PATCHES CHANGE EVERY 3RD DAY
     Dates: start: 20100218
  2. FENTANYL [Suspect]
     Indication: PAIN
     Dosage: 20 PATCHES CHANGE EVERY 3RD DAY
     Dates: start: 20100218
  3. FENTANYL [Suspect]
     Indication: FIBROMYALGIA
     Dosage: 20 PATCHES CHANGE EVERY 3RD DAY
     Dates: start: 20100303
  4. FENTANYL [Suspect]
     Indication: PAIN
     Dosage: 20 PATCHES CHANGE EVERY 3RD DAY
     Dates: start: 20100303
  5. FENTANYL [Suspect]

REACTIONS (2)
  - PRODUCT ADHESION ISSUE [None]
  - PRODUCT SUBSTITUTION ISSUE [None]
